FAERS Safety Report 7746757-3 (Version None)
Quarter: 2011Q3

REPORT INFORMATION
  Report Type: 
  Country: None (occurrence: None)
  Receive Date: 20110825
  Receipt Date: 20110502
  Transmission Date: 20111222
  Serious: No
  Sender: FDA-Public Use
  Company Number: 327806

PATIENT
  Age: 69 Year
  Sex: Female

DRUGS (2)
  1. METFORMIN HCL [Concomitant]
  2. VICTOZA [Suspect]
     Indication: TYPE 2 DIABETES MELLITUS
     Dosage: 0.6 MG, QD, SUBCUTANEOUS
     Route: 058
     Dates: start: 20110422

REACTIONS (10)
  - THROAT IRRITATION [None]
  - VOMITING [None]
  - CHEST PAIN [None]
  - DIZZINESS [None]
  - BACK PAIN [None]
  - DIARRHOEA [None]
  - INSOMNIA [None]
  - HEADACHE [None]
  - DYSPHAGIA [None]
  - NAUSEA [None]
